FAERS Safety Report 8779991 (Version 1)
Quarter: 2012Q4

REPORT INFORMATION
  Report Type: Report from Study
  Country: US (occurrence: US)
  Receive Date: 20120912
  Receipt Date: 20120912
  Transmission Date: 20130627
  Serious: No
  Sender: FDA-Public Use
  Company Number: US-VERTEX PHARMACEUTICAL INC.-AE-2011-005070

PATIENT

DRUGS (10)
  1. INCIVEK [Suspect]
     Indication: HEPATITIS C
     Route: 048
     Dates: start: 20111118, end: 20120210
  2. PEGASYS [Concomitant]
     Indication: HEPATITIS C
     Route: 058
     Dates: start: 20111118, end: 20120508
  3. RIBAVIRIN [Concomitant]
     Indication: HEPATITIS C
     Route: 048
     Dates: start: 20111118, end: 20120508
  4. CITALOPRAM [Concomitant]
  5. SYNTHROID [Concomitant]
  6. LANTUS [Concomitant]
  7. LISINOPRIL [Concomitant]
  8. METFORMIN [Concomitant]
  9. NOVOLOG [Concomitant]
  10. HCTZ/TRIAM [Concomitant]

REACTIONS (4)
  - Pain [Unknown]
  - Gastrointestinal motility disorder [Unknown]
  - Adverse event [Unknown]
  - Fatigue [Unknown]
